FAERS Safety Report 5954129-7 (Version None)
Quarter: 2008Q4

REPORT INFORMATION
  Report Type: 
  Country: None (occurrence: None)
  Receive Date: 20081117
  Receipt Date: 20081112
  Transmission Date: 20090506
  Serious: Yes (Hospitalization)
  Sender: FDA-Public Use
  Company Number: DE-BAYER-200826626GPV

PATIENT
  Age: 45 Year
  Sex: Female
  Weight: 60 kg

DRUGS (1)
  1. BETAFERON [Suspect]
     Indication: DRUG USE FOR UNKNOWN INDICATION
     Route: 058
     Dates: start: 20080227, end: 20080101

REACTIONS (4)
  - ASTHENIA [None]
  - CYSTITIS [None]
  - GENERAL PHYSICAL HEALTH DETERIORATION [None]
  - INJECTION SITE INFLAMMATION [None]
